FAERS Safety Report 5487786-2 (Version None)
Quarter: 2007Q3

REPORT INFORMATION
  Report Type: 
  Country: None (occurrence: None)
  Receive Date: 20070927
  Receipt Date: 20070829
  Transmission Date: 20080115
  Serious: Yes (Other)
  Sender: FDA-Public Use
  Company Number: A03200705379

PATIENT
  Age: 40 Year
  Sex: Male

DRUGS (5)
  1. AMBIEN [Suspect]
     Indication: INSOMNIA
     Dosage: ORAL
     Route: 048
     Dates: start: 20070802, end: 20070803
  2. ESOMEPRAZOLE [Concomitant]
  3. INDOMETHACIN [Concomitant]
  4. ALLOPURINOL [Concomitant]
  5. AMLODIPINE BESYLATE AND BENAZEPRIL HCL [Concomitant]

REACTIONS (2)
  - AMNESIA [None]
  - SOMNAMBULISM [None]
